FAERS Safety Report 20702340 (Version 1)
Quarter: 2022Q2

REPORT INFORMATION
  Report Type: Spontaneous
  Country: US (occurrence: US)
  Receive Date: 20220412
  Receipt Date: 20220412
  Transmission Date: 20220720
  Serious: No
  Sender: FDA-Public Use
  Company Number: US-PFIZER INC-202200360198

PATIENT
  Age: 63 Year
  Sex: Female

DRUGS (2)
  1. IBRANCE [Interacting]
     Active Substance: PALBOCICLIB
     Dosage: UNK
     Dates: start: 20220302
  2. SIMVASTATIN [Interacting]
     Active Substance: SIMVASTATIN
     Dosage: UNK

REACTIONS (2)
  - Feeling abnormal [Recovered/Resolved]
  - Drug interaction [Unknown]

NARRATIVE: CASE EVENT DATE: 20220301
